FAERS Safety Report 6695792-5 (Version None)
Quarter: 2010Q2

REPORT INFORMATION
  Report Type: 
  Country: None (occurrence: None)
  Receive Date: 20100423
  Receipt Date: 20100423
  Transmission Date: 20101027
  Serious: Yes (Hospitalization)
  Sender: FDA-Public Use
  Company Number: None

PATIENT
  Sex: Male
  Weight: 62.5964 kg

DRUGS (8)
  1. GEMCITABINE HCL [Suspect]
     Indication: NON-SMALL CELL LUNG CANCER
     Dosage: 1571 MG WEEKLY IV DRIP
     Route: 041
     Dates: start: 20100401, end: 20100408
  2. PROPRANOLOL [Concomitant]
  3. TRAMADOL HCL [Concomitant]
  4. ASPIRIN [Concomitant]
  5. MIRTAZAPINE [Concomitant]
  6. FELODIPINE [Concomitant]
  7. LISONPRIL [Concomitant]
  8. OMEPRAZOLE [Concomitant]

REACTIONS (4)
  - ATRIAL FIBRILLATION [None]
  - BLOOD PRESSURE ABNORMAL [None]
  - CYANOSIS [None]
  - RESPIRATION ABNORMAL [None]
